FAERS Safety Report 4850763-6 (Version None)
Quarter: 2005Q4

REPORT INFORMATION
  Report Type: 
  Country: None (occurrence: None)
  Receive Date: 20051208
  Receipt Date: 20051130
  Transmission Date: 20060501
  Serious: Yes (Other)
  Sender: FDA-Public Use
  Company Number: 2005-12-0053

PATIENT
  Age: 29 Year
  Sex: Female

DRUGS (3)
  1. PEG-INTRON [Suspect]
     Indication: HEPATITIS C
     Dosage: 60 MCG QW SUBCUTANEOUS
     Route: 058
     Dates: start: 20050720, end: 20051115
  2. REBETOL [Suspect]
     Indication: HEPATITIS C
     Dosage: 400 MG ORAL
     Route: 048
     Dates: end: 20051115
  3. PEGASYS [Suspect]
     Indication: HEPATITIS C
     Dosage: 90 MCG
     Dates: start: 20050525, end: 20050713

REACTIONS (2)
  - CARDIAC FAILURE [None]
  - CARDIOMEGALY [None]
